FAERS Safety Report 18174749 (Version 1)
Quarter: 2020Q3

REPORT INFORMATION
  Report Type: Spontaneous
  Country: US (occurrence: US)
  Receive Date: 20200820
  Receipt Date: 20200820
  Transmission Date: 20201103
  Serious: No
  Sender: FDA-Public Use
  Company Number: US-PFIZER INC-2020321289

PATIENT
  Age: 59 Year
  Sex: Female

DRUGS (1)
  1. IBRANCE [Suspect]
     Active Substance: PALBOCICLIB
     Dosage: 125 MG, CYCLIC (IBRANCE 125MG Q DAY X21)
     Dates: start: 20200420

REACTIONS (4)
  - Intentional dose omission [Unknown]
  - Faeces soft [Unknown]
  - Diarrhoea [Unknown]
  - Muscle spasms [Unknown]
